FAERS Safety Report 7719527-X (Version None)
Quarter: 2011Q3

REPORT INFORMATION
  Report Type: 
  Country: None (occurrence: None)
  Receive Date: 20110830
  Receipt Date: 20110824
  Transmission Date: 20111222
  Serious: Yes (Hospitalization)
  Sender: FDA-Public Use
  Company Number: PHHY2011NL75657

PATIENT
  Sex: Female
  Weight: 50 kg

DRUGS (2)
  1. TOLBUTAMIDE [Concomitant]
     Dosage: 2 TABLETS QD, 1.5 TABLET QD
     Route: 048
     Dates: start: 19990101
  2. SERTRALINE SANDOZ [Suspect]
     Indication: DEPRESSED MOOD
     Dosage: 50 MG, QD
     Route: 048
     Dates: start: 20110608, end: 20110616

REACTIONS (1)
  - RENAL TUBULAR ACIDOSIS [None]
